FAERS Safety Report 8954486 (Version 2)
Quarter: 2013Q1

REPORT INFORMATION
  Report Type: Spontaneous
  Country: US (occurrence: US)
  Receive Date: 20121207
  Receipt Date: 20130212
  Transmission Date: 20140127
  Serious: Yes (Hospitalization, Other)
  Sender: FDA-Public Use
  Company Number: US-PFIZER INC-2012307912

PATIENT
  Age: 72 Year
  Sex: Female
  Weight: 121 kg

DRUGS (25)
  1. LYRICA [Suspect]
     Indication: PAIN IN EXTREMITY
     Dosage: 150 MG, 2X/DAY
     Route: 048
     Dates: start: 2006
  2. LYRICA [Suspect]
     Indication: NEUROPATHY PERIPHERAL
  3. METFORMIN HCL [Suspect]
     Indication: DIABETES MELLITUS
     Dosage: UNK
     Dates: start: 2005
  4. LISINOPRIL W/HYDROCHLOROTHIAZIDE [Suspect]
     Indication: BLOOD PRESSURE ABNORMAL
     Dosage: 20/25 MG, 1/2 TAB DAILY IN MORNING
  5. DILTIAZEM HYDROCHLORIDE [Suspect]
     Indication: BLOOD PRESSURE ABNORMAL
     Dosage: 50 MG, DAILY
  6. TOPROL XL [Suspect]
     Indication: BLOOD PRESSURE ABNORMAL
     Dosage: 200 MG, DAILY AT BEDTIME (1) 1X DAYBED)
  7. PREDNISONE [Concomitant]
     Dosage: 3 PILLS A DAY
  8. AMOXICILLIN W/CLAVULANATE POTASSIUM [Concomitant]
     Dosage: 875 MG, UNK
  9. CRESTOR [Concomitant]
     Indication: BLOOD CHOLESTEROL ABNORMAL
     Dosage: 20 MG, DAILY ((1) IX DAY AM)
  10. GLIMEPIRIDE [Concomitant]
     Indication: DIABETES MELLITUS
     Dosage: 0.5 MG, 1X/DAY (1 MG, 1/2 TABLET 1 X DAY AM)
  11. LEVOTHYROXINE [Concomitant]
     Dosage: 75 MG, 1X/DAY
  12. LEVOTHYROXINE [Concomitant]
     Dosage: 75 MG, 1X/DAY ((1) 1X DAY AM)
  13. NEXIUM [Concomitant]
     Indication: SINUS DISORDER
     Dosage: 40 MG, DAILY ((1) 1 X DAY AM)
  14. NEXIUM [Concomitant]
     Indication: DYSPEPSIA
  15. ALENDRONATE [Concomitant]
     Dosage: 70 MG, WEEKLY ((1) 1 X WEEK)
  16. ASPIRIN ^BAYER^ [Concomitant]
     Dosage: 81 MG, 1X/DAY ((1) 1X DAY)
  17. CENTRUM SILVER VITAMIN [Concomitant]
     Dosage: 1 DF, 1X/DAY ((1) 1 X DAY)
  18. FERROUS SULFATE (IRON) [Concomitant]
     Dosage: 65 MG, 1X/DAY ((1) 1X DAY AM)
  19. MIRALAX [Concomitant]
     Dosage: 17 G, 1X/DAY ((1) 1X DAY BED)
  20. STOOL SOFTENER [Concomitant]
     Dosage: 300 MG, 1X/DAY (100MG, (3) 1X DAY BED)
  21. PROAIR HFA [Concomitant]
     Dosage: UNK (AGR), AS NEEDED
  22. FLUTICASONE PROPIONATE [Concomitant]
     Dosage: 50 MG, AS NEEDED (2 SPRAYS AS NEEDED)
  23. ASA [Concomitant]
     Dosage: 81 MG, UNK
  24. FISH OIL [Concomitant]
     Dosage: 2000 MG, 2X/DAY
  25. SENOKOT-S [Concomitant]
     Dosage: 150 MG, 1X/DAY

REACTIONS (8)
  - Renal disorder [Unknown]
  - Cardiac disorder [Unknown]
  - Large intestine benign neoplasm [Unknown]
  - Back disorder [Unknown]
  - Breast disorder [Unknown]
  - Spinal disorder [Not Recovered/Not Resolved]
  - Pain in extremity [Not Recovered/Not Resolved]
  - Cough [Not Recovered/Not Resolved]
